FAERS Safety Report 7859134-1 (Version None)
Quarter: 2011Q4

REPORT INFORMATION
  Report Type: 
  Country: None (occurrence: None)
  Receive Date: 20111027
  Receipt Date: 20111024
  Transmission Date: 20120403
  Serious: No
  Sender: FDA-Public Use
  Company Number: US-B.I. PHARMACEUTICALS,INC./RIDGEFIELD-2011-BP-24876BP

PATIENT
  Sex: Male

DRUGS (1)
  1. CLONIDINE [Suspect]
     Indication: HYPERTENSION

REACTIONS (7)
  - HEADACHE [None]
  - AGEUSIA [None]
  - PRURITUS [None]
  - PULMONARY CONGESTION [None]
  - RHINORRHOEA [None]
  - INSOMNIA [None]
  - DEPRESSED LEVEL OF CONSCIOUSNESS [None]
